FAERS Safety Report 16807157 (Version 1)
Quarter: 2019Q3

REPORT INFORMATION
  Report Type: Spontaneous
  Country: US (occurrence: US)
  Receive Date: 20190913
  Receipt Date: 20190913
  Transmission Date: 20191005
  Serious: No
  Sender: FDA-Public Use
  Company Number: US-TEVA-2019-US-1106312

PATIENT
  Age: 64 Year
  Sex: Female

DRUGS (1)
  1. PREGABALIN CAPSULE [Suspect]
     Active Substance: PREGABALIN
     Route: 065
     Dates: start: 20190822

REACTIONS (3)
  - Malaise [Recovered/Resolved]
  - Oedema [Recovered/Resolved]
  - Swelling [Recovered/Resolved]

NARRATIVE: CASE EVENT DATE: 20190822
